FAERS Safety Report 5405672-0 (Version None)
Quarter: 2007Q3

REPORT INFORMATION
  Report Type: 
  Country: None (occurrence: None)
  Receive Date: 20070806
  Receipt Date: 20070730
  Transmission Date: 20080115
  Serious: Yes (Hospitalization, Other)
  Sender: FDA-Public Use
  Company Number: PHEH2007US07101

PATIENT
  Sex: Female
  Weight: 71.564 kg

DRUGS (4)
  1. ZELNORM [Suspect]
     Indication: IRRITABLE BOWEL SYNDROME
     Dosage: 6 MG, BID
     Route: 048
     Dates: start: 20021024, end: 20060101
  2. ZELNORM [Suspect]
     Dosage: 2 MG, PRN
     Route: 048
     Dates: start: 20060101, end: 20070514
  3. LANSOPRAZOLE [Concomitant]
     Indication: REFLUX OESOPHAGITIS
     Dosage: 30 MG, QD
     Route: 048
     Dates: start: 20010115
  4. EZETIMIBE [Concomitant]
     Indication: HYPERLIPIDAEMIA
     Dosage: 10 MG, QHS
     Route: 048
     Dates: start: 20030725, end: 20050912

REACTIONS (22)
  - ABDOMINAL DISTENSION [None]
  - ABDOMINAL PAIN UPPER [None]
  - AMNESIA [None]
  - ANAEMIA [None]
  - BLOOD ALKALINE PHOSPHATASE DECREASED [None]
  - BLOOD CHOLESTEROL INCREASED [None]
  - BRADYCARDIA [None]
  - DYSPNOEA [None]
  - FATIGUE [None]
  - FLUID RETENTION [None]
  - HAEMORRHOIDAL HAEMORRHAGE [None]
  - HEADACHE [None]
  - HYPERLIPIDAEMIA [None]
  - HYPERTENSION [None]
  - HYPOAESTHESIA [None]
  - LOW DENSITY LIPOPROTEIN INCREASED [None]
  - MITRAL VALVE INCOMPETENCE [None]
  - MITRAL VALVE PROLAPSE [None]
  - OEDEMA PERIPHERAL [None]
  - OSTEOPENIA [None]
  - SYNCOPE [None]
  - VITAMIN D DEFICIENCY [None]
